FAERS Safety Report 10029016 (Version 2)
Quarter: 2014Q2

REPORT INFORMATION
  Report Type: Report from Study
  Country: US (occurrence: US)
  Receive Date: 20140321
  Receipt Date: 20140403
  Transmission Date: 20141212
  Serious: Yes (Hospitalization, Other)
  Sender: FDA-Public Use
  Company Number: US-MPIJNJ-2014MPI000787

PATIENT
  Sex: Male
  Weight: 73.2 kg

DRUGS (7)
  1. VELCADE [Suspect]
     Indication: PLASMA CELL MYELOMA
     Dosage: 1.3 MG/M2, ON DAY 1, 8 AND 15 OF 28 DAY CYCLE
     Route: 058
     Dates: start: 20121226
  2. VELCADE [Suspect]
     Dosage: 1.3 MG/M2, ON EVERY 2 WEEKS
     Route: 058
     Dates: start: 201308
  3. CYCLOPHOSPHAMIDE [Suspect]
     Indication: PLASMA CELL MYELOMA
     Dosage: 300 MG/M2, ON DAY 1, 8 AND 15 OF 28 DAY CYCLE
     Route: 048
     Dates: start: 20121226
  4. LENALIDOMIDE [Suspect]
     Indication: PLASMA CELL MYELOMA
     Dosage: 5 MG, FOR 21 DAYS OF 28 DAYS CYCLE
     Dates: start: 201308
  5. DEXAMETHASONE [Suspect]
     Indication: PLASMA CELL MYELOMA
     Dosage: 40 MG, ON DAY 1, 8 AND 15 OF 28 DAYS CYCLE
     Route: 048
     Dates: start: 20121226
  6. TYLENOL                            /00020001/ [Concomitant]
     Indication: BACK PAIN
  7. ZOMETA [Concomitant]

REACTIONS (3)
  - Subdural haematoma [Unknown]
  - Sepsis [Unknown]
  - Fall [Unknown]
